FAERS Safety Report 5365184-X (Version None)
Quarter: 2007Q2

REPORT INFORMATION
  Report Type: 
  Country: None (occurrence: None)
  Receive Date: 20070621
  Receipt Date: 20070615
  Transmission Date: 20071010
  Serious: Yes (Death)
  Sender: FDA-Public Use
  Company Number: US-BAYER-200711307BWH

PATIENT
  Age: 77 Year
  Sex: Male

DRUGS (2)
  1. AVELOX [Suspect]
     Indication: BRONCHITIS
     Dosage: TOTAL DAILY DOSE: 400 MG  UNIT DOSE: 400 MG
     Route: 048
     Dates: start: 20070113, end: 20070113
  2. PREDNISONE TAB [Suspect]
     Indication: BRONCHITIS
     Dosage: TOTAL DAILY DOSE: 40 MG
     Dates: start: 20070113, end: 20070113

REACTIONS (1)
  - DEATH [None]
